FAERS Safety Report 6321943-8 (Version None)
Quarter: 2009Q3

REPORT INFORMATION
  Report Type: 
  Country: None (occurrence: None)
  Receive Date: 20090812
  Receipt Date: 20090708
  Transmission Date: 20100115
  Serious: No
  Sender: FDA-Public Use
  Company Number: WAES 0907USA01085

PATIENT
  Age: 45 Year
  Sex: Male

DRUGS (3)
  1. ISENTRESS [Suspect]
     Dates: start: 20080901
  2. NORVIR [Concomitant]
  3. TRUVADA [Concomitant]

REACTIONS (4)
  - ASTHENIA [None]
  - HYPONATRAEMIA [None]
  - MALAISE [None]
  - NIGHT SWEATS [None]
